FAERS Safety Report 9191347 (Version 12)
Quarter: 2020Q3

REPORT INFORMATION
  Report Type: Report from Study
  Country: AU (occurrence: AU)
  Receive Date: 20130326
  Receipt Date: 20150716
  Transmission Date: 20201104
  Serious: Yes (Hospitalization)
  Sender: FDA-Public Use
  Company Number: AU-JNJFOC-20130311876

PATIENT
  Age: 49 Year
  Sex: Male
  Weight: 126.4 kg

DRUGS (8)
  1. ADVIL [Concomitant]
     Active Substance: IBUPROFEN
     Indication: CROHN^S DISEASE
     Route: 048
     Dates: start: 20120912
  2. USTEKINUMAB [Suspect]
     Active Substance: USTEKINUMAB
     Route: 058
  3. ARTHREXIN [Concomitant]
     Active Substance: INDOMETHACIN
     Indication: CROHN^S DISEASE
     Route: 048
     Dates: start: 201209, end: 20130313
  4. PARACETAMOL [Concomitant]
     Active Substance: ACETAMINOPHEN
     Indication: CROHN^S DISEASE
     Route: 048
     Dates: end: 20130307
  5. PHENERGAN [Concomitant]
     Active Substance: PROMETHAZINE HYDROCHLORIDE
     Route: 030
     Dates: start: 20130218, end: 20130218
  6. ADRENALINE [Concomitant]
     Active Substance: EPINEPHRINE
     Route: 030
     Dates: start: 20130218, end: 20130218
  7. USTEKINUMAB [Suspect]
     Active Substance: USTEKINUMAB
     Indication: CROHN^S DISEASE
     Route: 058
     Dates: start: 20130307
  8. ZYRTEC [Concomitant]
     Active Substance: CETIRIZINE HYDROCHLORIDE
     Route: 048
     Dates: start: 20130218, end: 20130218

REACTIONS (1)
  - Polyarthritis [Recovered/Resolved with Sequelae]

NARRATIVE: CASE EVENT DATE: 20130313
